FAERS Safety Report 17750539 (Version 1)
Quarter: 2020Q2

REPORT INFORMATION
  Report Type: Spontaneous
  Country: US (occurrence: US)
  Receive Date: 20200505
  Receipt Date: 20200505
  Transmission Date: 20200714
  Serious: Yes (Hospitalization, Disabling, Other)
  Sender: FDA-Public Use
  Company Number: None

PATIENT
  Age: 94 Year
  Sex: Female
  Weight: 76.2 kg

DRUGS (1)
  1. UREA 40 [Suspect]
     Active Substance: UREA
     Indication: CELLULITIS
     Dosage: SMALL AMOUNT  ONCE
     Dates: start: 20200114, end: 20200430

REACTIONS (2)
  - Cellulitis [None]
  - Myocardial infarction [None]

NARRATIVE: CASE EVENT DATE: 20200113
